FAERS Safety Report 17804396 (Version 3)
Quarter: 2020Q4

REPORT INFORMATION
  Report Type: Report from Study
  Country: NL (occurrence: NL)
  Receive Date: 20200519
  Receipt Date: 20201228
  Transmission Date: 20210113
  Serious: Yes (Other)
  Sender: FDA-Public Use
  Company Number: NL-AMGEN-NLDSL2020078729

PATIENT
  Age: 60 Year
  Sex: Male

DRUGS (28)
  1. ACETYLSALICYLIC ACID [Concomitant]
     Active Substance: ASPIRIN
     Dosage: 80 MILLIGRAM, QD
  2. FENTANYL. [Concomitant]
     Active Substance: FENTANYL
     Dosage: 200 MICROGRAM, 6D1T WHEN NEEDED
  3. TRIAMCINOLONACETONIDE [Concomitant]
     Active Substance: TRIAMCINOLONE ACETONIDE
     Dosage: 10 MILLIGRAM PER MILLILITRE
  4. XGEVA [Suspect]
     Active Substance: DENOSUMAB
     Dosage: UNK
     Route: 058
  5. PREDNISOLON [PREDNISOLONE] [Concomitant]
     Active Substance: PREDNISOLONE
     Dosage: 5 MILLIGRAM, BID
  6. ETORICOXIB. [Concomitant]
     Active Substance: ETORICOXIB
     Dosage: 30 MILLIGRAM, QD
  7. LEUPRORELINE [Concomitant]
     Active Substance: LEUPROLIDE
     Dosage: 45 MILLIGRAM 1X6M1INJ.
  8. ENZALUTAMIDE [Concomitant]
     Active Substance: ENZALUTAMIDE
     Dosage: 40 MILLIGRAM 1D4T.
  9. XGEVA [Suspect]
     Active Substance: DENOSUMAB
     Indication: PROPHYLAXIS
     Dosage: 120 MILLIGRAM (1.7ML), Q4WK
     Route: 058
     Dates: start: 20200506
  10. CALCIUM CARBONATE;COLECALCIFEROL [Concomitant]
     Active Substance: CALCIUM CARBONATE\CHOLECALCIFEROL
     Dosage: 1.25G/400IE(500MG CA), 1D2T.
  11. FENTANYL. [Concomitant]
     Active Substance: FENTANYL
     Dosage: 25UG/HOUR (GENERIC+DUROGESIC) 1DD1PL
  12. FENTANYL. [Concomitant]
     Active Substance: FENTANYL
     Dosage: 100 MICROGRAM 6D1T WHEN NEEDED
  13. FENTANYL. [Concomitant]
     Active Substance: FENTANYL
     Dosage: 75UG/HR (GENERIC+DUROGESIC), 1X3D1PL
  14. LOSARTAN. [Concomitant]
     Active Substance: LOSARTAN
     Dosage: 100 MILLIGRAM, QD
  15. BECLOMET [BECLOMETASONE DIPROPIONATE] [Concomitant]
     Dosage: 87/5/9UG/DO 120DO INH 2D2I
  16. DEXAMETHASON [DEXAMETHASONE] [Concomitant]
     Active Substance: DEXAMETHASONE
     Dosage: 4 MILLIGRAM
  17. LEUPRORELINE [Concomitant]
     Active Substance: LEUPROLIDE
     Dosage: 45 MILLIGRAM, QD
  18. SIMVASTATINE [Concomitant]
     Active Substance: SIMVASTATIN
     Dosage: 40 MILLIGRAM, QD
  19. CALCIUM CARBONATE;COLECALCIFEROL [Concomitant]
     Active Substance: CALCIUM CARBONATE\CHOLECALCIFEROL
     Dosage: 2,5G/880IE (1000MG CA),1000 MILLIGRAM, QD
  20. ETORICOXIB. [Concomitant]
     Active Substance: ETORICOXIB
     Dosage: 60 MILLIGRAM, QD
  21. ROSUVASTATINE [ROSUVASTATIN] [Concomitant]
     Active Substance: ROSUVASTATIN
     Dosage: 20 MILLIGRAM, QD
  22. IPRATROPIUM;SALBUTAMOL [Concomitant]
     Active Substance: ALBUTEROL\IPRATROPIUM
     Dosage: 1/0,2MG/ML FL, 4D1AM.
  23. FENTANYL. [Concomitant]
     Active Substance: FENTANYL
     Dosage: 50UG/HR (GENERIC+DUROGESIC) 1DD1PL
  24. PANTOPRAZOL [PANTOPRAZOLE] [Concomitant]
     Active Substance: PANTOPRAZOLE
     Dosage: 40 MILLIGRAM, QD
  25. PAROXETINE. [Concomitant]
     Active Substance: PAROXETINE
     Dosage: 20 MILLIGRAM, BID
  26. TAMSULOSINE [TAMSULOSIN] [Concomitant]
     Active Substance: TAMSULOSIN
     Dosage: 0.4 MILLIGRAM, QD
  27. NIFEDIPINE. [Concomitant]
     Active Substance: NIFEDIPINE
     Dosage: 30 MILLIGRAM 2D1T
  28. SODIUM CHLORIDE. [Concomitant]
     Active Substance: SODIUM CHLORIDE
     Dosage: 9 MILLIGRAM PER MILLILITRE (0.9%) AMP 20ML, 4D1INJ.

REACTIONS (3)
  - Metastases to prostate [Not Recovered/Not Resolved]
  - Metastases to lung [Not Recovered/Not Resolved]
  - Metastases to spine [Not Recovered/Not Resolved]

NARRATIVE: CASE EVENT DATE: 20200506
